FAERS Safety Report 7817497-7 (Version None)
Quarter: 2011Q4

REPORT INFORMATION
  Report Type: 
  Country: None (occurrence: None)
  Receive Date: 20111017
  Receipt Date: 20111011
  Transmission Date: 20120403
  Serious: No
  Sender: FDA-Public Use
  Company Number: US-BAYER-2011-098653

PATIENT
  Sex: Female

DRUGS (2)
  1. BEYAZ [Suspect]
  2. YAZ [Suspect]

REACTIONS (4)
  - LIBIDO DECREASED [None]
  - LIBIDO INCREASED [None]
  - METRORRHAGIA [None]
  - ACNE [None]
